FAERS Safety Report 25995943 (Version 1)
Quarter: 2025Q4

REPORT INFORMATION
  Report Type: Spontaneous
  Country: US (occurrence: None)
  Receive Date: 20251104
  Receipt Date: 20251104
  Transmission Date: 20260117
  Serious: Yes (Life-Threatening, Hospitalization, Other)
  Sender: FDA-CTU
  Company Number: None

PATIENT
  Age: 16 Year
  Sex: Male
  Weight: 48.6 kg

DRUGS (1)
  1. SERTRALINE HYDROCHLORIDE [Suspect]
     Active Substance: SERTRALINE HYDROCHLORIDE
     Indication: Depression
     Dosage: 90 TABLET(S) DAILY ORAL OTHER QUANTITY : 90 TABLET(S);?FREQUENCY : DAILY;?
     Route: 048
     Dates: start: 20250415, end: 20250819

REACTIONS (5)
  - Suicide attempt [None]
  - Alcohol poisoning [None]
  - Intentional overdose [None]
  - Abnormal behaviour [None]
  - Personality change [None]

NARRATIVE: CASE EVENT DATE: 20250514
